FAERS Safety Report 21968799 (Version 1)
Quarter: 2023Q1

REPORT INFORMATION
  Report Type: Spontaneous
  Country: GB (occurrence: GB)
  Receive Date: 20230208
  Receipt Date: 20230208
  Transmission Date: 20230418
  Serious: Yes (Other)
  Sender: FDA-Public Use
  Company Number: GB-MHRA-MED-202302021632017170-ZVDNF

PATIENT
  Age: 19 Year
  Sex: Female
  Weight: 49 kg

DRUGS (6)
  1. HYDROCORTISONE SODIUM SUCCINATE [Suspect]
     Active Substance: HYDROCORTISONE SODIUM SUCCINATE
     Indication: Hyperemesis gravidarum
     Dosage: 100MG BD; ;
  2. CYCLIZINE [Concomitant]
     Active Substance: CYCLIZINE
  3. DALTEPARIN [Concomitant]
     Active Substance: DALTEPARIN
  4. DOMPERIDONE [Concomitant]
     Active Substance: DOMPERIDONE
  5. FOLIC ACID [Concomitant]
     Active Substance: FOLIC ACID
     Indication: Vitamin supplementation
  6. METOCLOPRAMIDE [Concomitant]
     Active Substance: METOCLOPRAMIDE

REACTIONS (5)
  - Maternal exposure during pregnancy [Unknown]
  - Dyspnoea [Recovered/Resolved]
  - Tachycardia [Recovered/Resolved]
  - Wheezing [Recovered/Resolved]
  - Off label use [Unknown]

NARRATIVE: CASE EVENT DATE: 20220202
